FAERS Safety Report 4768842-0 (Version None)
Quarter: 2005Q3

REPORT INFORMATION
  Report Type: 
  Country: None (occurrence: None)
  Receive Date: 20050914
  Receipt Date: 20050720
  Transmission Date: 20060218
  Serious: Yes (Hospitalization)
  Sender: FDA-Public Use
  Company Number: US-MERCK-0507USA03231

PATIENT
  Age: 0 Day
  Sex: Male
  Weight: 1 kg

DRUGS (4)
  1. SINGULAIR [Suspect]
     Indication: ASTHMA
     Dates: start: 20030301
  2. PREDNISOLONE [Concomitant]
  3. ALBUTEROL [Concomitant]
  4. TESSALON [Concomitant]

REACTIONS (1)
  - ANAEMIA [None]
